FAERS Safety Report 13194655 (Version 1)
Quarter: 2017Q1

REPORT INFORMATION
  Report Type: Spontaneous
  Country: US (occurrence: US)
  Receive Date: 20170207
  Receipt Date: 20170207
  Transmission Date: 20170428
  Serious: No
  Sender: FDA-Public Use
  Company Number: US-JAZZ-2016-US-015468

PATIENT
  Age: 71 Year
  Sex: Female

DRUGS (3)
  1. PRIALT [Suspect]
     Active Substance: ZICONOTIDE ACETATE
     Indication: SPINAL PAIN
     Dosage: 0.471 ?G, QH
     Route: 037
  2. MORPHINE SULF [Suspect]
     Active Substance: MORPHINE SULFATE
     Indication: SPINAL PAIN
     Dosage: 0.792 MG, QH
     Route: 037
  3. BACLOFEN. [Suspect]
     Active Substance: BACLOFEN
     Indication: SPINAL PAIN
     Dosage: 12.583 ?G, QH
     Route: 037

REACTIONS (3)
  - Seroma [Unknown]
  - Secretion discharge [Unknown]
  - Device issue [Unknown]

NARRATIVE: CASE EVENT DATE: 20160722
